FAERS Safety Report 9788044 (Version 1)
Quarter: 2013Q4

REPORT INFORMATION
  Report Type: Spontaneous
  Country: US (occurrence: None)
  Receive Date: 20131227
  Receipt Date: 20131227
  Transmission Date: 20140711
  Serious: Yes (Hospitalization)
  Sender: FDA-Public Use
  Company Number: None

PATIENT
  Age: 73 Year
  Sex: Male
  Weight: 84.5 kg

DRUGS (9)
  1. ERBITUX [Suspect]
     Indication: PALLIATIVE CARE
     Route: 042
  2. ERBITUX [Suspect]
     Indication: CHEMOTHERAPY
     Route: 042
  3. DURAGESIC [Concomitant]
  4. OXYCODONE [Concomitant]
  5. PHENERGAN [Concomitant]
  6. SOMA [Concomitant]
  7. COUMADIN [Concomitant]
  8. LANSOPRAZOLE [Concomitant]
  9. GUAIFENESIN-DEXTROMETHORPHAN [Concomitant]

REACTIONS (1)
  - Anaphylactic reaction [None]
